FAERS Safety Report 15984791 (Version 1)
Quarter: 2019Q1

REPORT INFORMATION
  Report Type: Spontaneous
  Country: DE (occurrence: DE)
  Receive Date: 20190220
  Receipt Date: 20190220
  Transmission Date: 20190418
  Serious: Yes (Other)
  Sender: FDA-Public Use
  Company Number: DE-ALEXION PHARMACEUTICALS INC.-A201902309

PATIENT
  Age: 60 Year
  Sex: Female

DRUGS (1)
  1. STRENSIQ [Suspect]
     Active Substance: ASFOTASE ALFA
     Indication: PRODUCT USED FOR UNKNOWN INDICATION
     Dosage: UNK
     Route: 065
     Dates: start: 201901

REACTIONS (6)
  - C-reactive protein increased [Unknown]
  - Nausea [Unknown]
  - Arrhythmia [Unknown]
  - Swelling of eyelid [Unknown]
  - Restlessness [Unknown]
  - Dysgeusia [Unknown]
